FAERS Safety Report 23115220 (Version 6)
Quarter: 2024Q1

REPORT INFORMATION
  Report Type: Spontaneous
  Country: US (occurrence: US)
  Receive Date: 20231027
  Receipt Date: 20240103
  Transmission Date: 20240409
  Serious: No
  Sender: FDA-Public Use
  Company Number: US-PFIZER INC-202300319231

PATIENT
  Age: 2 Year
  Sex: Female
  Weight: 10.43 kg

DRUGS (1)
  1. SOMATROPIN [Suspect]
     Active Substance: SOMATROPIN
     Indication: Septo-optic dysplasia
     Dosage: 0.4 MG, 1X/DAY (INJECT 1 SYRINGE SUBCUTANEOUSLY ONCE DAILY)
     Route: 058
     Dates: start: 202307

REACTIONS (4)
  - Off label use [Unknown]
  - Drug dose omission by device [Unknown]
  - Device malfunction [Unknown]
  - Device issue [Unknown]

NARRATIVE: CASE EVENT DATE: 20230701
